FAERS Safety Report 4761783-4 (Version None)
Quarter: 2005Q3

REPORT INFORMATION
  Report Type: 
  Country: None (occurrence: None)
  Receive Date: 20050906
  Receipt Date: 20050823
  Transmission Date: 20060218
  Serious: Yes (Other)
  Sender: FDA-Public Use
  Company Number: US-GLAXOSMITHKLINE-A0571367A

PATIENT
  Age: 27 Year
  Sex: Male
  Weight: 95 kg

DRUGS (2)
  1. NICODERM CQ [Suspect]
     Route: 062
     Dates: start: 20050811
  2. ONE A DAY VITAMIN [Concomitant]

REACTIONS (7)
  - ABNORMAL DREAMS [None]
  - CHOLINERGIC SYNDROME [None]
  - CONVULSION [None]
  - DRY MOUTH [None]
  - DYSKINESIA [None]
  - INSOMNIA [None]
  - NAUSEA [None]
